FAERS Safety Report 14259765 (Version 4)
Quarter: 2019Q1

REPORT INFORMATION
  Report Type: Spontaneous
  Country: GB (occurrence: GB)
  Receive Date: 20171207
  Receipt Date: 20190118
  Transmission Date: 20190417
  Serious: Yes (Hospitalization)
  Sender: FDA-Public Use
  Company Number: PHHY2017GB180236

PATIENT
  Sex: Female

DRUGS (1)
  1. CICLOSPORIN [Suspect]
     Active Substance: CYCLOSPORINE
     Indication: PSORIASIS
     Dosage: 100 MG, BID
     Route: 048
     Dates: start: 201407, end: 201810

REACTIONS (4)
  - Back pain [Unknown]
  - Nausea [Unknown]
  - Chest discomfort [Unknown]
  - Malaise [Unknown]
